FAERS Safety Report 5157570-8 (Version None)
Quarter: 2006Q4

REPORT INFORMATION
  Report Type: 
  Country: None (occurrence: None)
  Receive Date: 20061115
  Receipt Date: 20060911
  Transmission Date: 20070319
  Serious: Yes (Hospitalization)
  Sender: FDA-Public Use
  Company Number: ABX34-06-0458

PATIENT
  Age: 61 Year
  Sex: Female
  Weight: 98.8842 kg

DRUGS (4)
  1. ABRAXANE [Suspect]
     Indication: BREAST CANCER METASTATIC
     Dosage: 250 MG/M2 (DOSING ON DAYS 1, 8 Q 21 DAYS), INTRAVENOUS
     Route: 042
     Dates: start: 20060417, end: 20060908
  2. XELODA [Suspect]
     Indication: BREAST CANCER
     Dosage: 1500 MG/M2 (BID X 14 DAYS), ORAL
     Route: 048
     Dates: start: 20060417, end: 20060908
  3. CELEBREX [Concomitant]
  4. NEUPOGEN [Concomitant]

REACTIONS (6)
  - ABSCESS [None]
  - CELLULITIS [None]
  - DISEASE RECURRENCE [None]
  - MASTITIS [None]
  - SKIN NECROSIS [None]
  - THERAPY NON-RESPONDER [None]
